FAERS Safety Report 23666676 (Version 2)
Quarter: 2024Q2

REPORT INFORMATION
  Report Type: Report from Study
  Country: US (occurrence: US)
  Receive Date: 20240325
  Receipt Date: 20240430
  Transmission Date: 20240716
  Serious: Yes (Hospitalization, Other)
  Sender: FDA-Public Use
  Company Number: US-ABBVIE-5688890

PATIENT
  Age: 55 Year
  Sex: Male

DRUGS (2)
  1. HUMIRA [Suspect]
     Active Substance: ADALIMUMAB
     Indication: Rheumatoid arthritis
     Dosage: FORM STRENGTH: 40 MILLIGRAM?CITRATE FREE
     Route: 058
     Dates: start: 20220413
  2. METHOTREXATE [Suspect]
     Active Substance: METHOTREXATE
     Indication: Product used for unknown indication
     Route: 065

REACTIONS (10)
  - Nephrolithiasis [Not Recovered/Not Resolved]
  - Urticaria [Not Recovered/Not Resolved]
  - Gait inability [Recovered/Resolved]
  - Decreased appetite [Unknown]
  - Gout [Recovered/Resolved]
  - Blister [Unknown]
  - Aphthous ulcer [Unknown]
  - Immunodeficiency [Unknown]
  - Bacterial infection [Unknown]
  - Weight decreased [Unknown]

NARRATIVE: CASE EVENT DATE: 20240315
